FAERS Safety Report 6075431-7 (Version None)
Quarter: 2009Q1

REPORT INFORMATION
  Report Type: 
  Country: None (occurrence: None)
  Receive Date: 20090212
  Receipt Date: 20090206
  Transmission Date: 20090719
  Serious: Yes (Hospitalization)
  Sender: FDA-Public Use
  Company Number: A0718705A

PATIENT
  Age: 64 Year
  Sex: Male
  Weight: 71.8 kg

DRUGS (7)
  1. AVANDIA [Suspect]
     Indication: TYPE 2 DIABETES MELLITUS
     Route: 048
     Dates: start: 20010101, end: 20070301
  2. HYZAAR [Concomitant]
  3. COLESTID [Concomitant]
  4. PLAVIX [Concomitant]
  5. TRICOR [Concomitant]
  6. AMLODIPINE [Concomitant]
  7. VIAGRA [Concomitant]

REACTIONS (7)
  - ARTERIOSCLEROSIS [None]
  - CARDIAC HYPERTROPHY [None]
  - CARDIOVASCULAR DISORDER [None]
  - CORONARY ARTERY DISEASE [None]
  - LEFT VENTRICULAR DYSFUNCTION [None]
  - MYOCARDIAL INFARCTION [None]
  - PERIPHERAL VASCULAR DISORDER [None]
